FAERS Safety Report 8988789 (Version 1)
Quarter: 2012Q4

REPORT INFORMATION
  Report Type: Spontaneous
  Country: US (occurrence: None)
  Receive Date: 20121218
  Receipt Date: 20121218
  Transmission Date: 20130627
  Serious: Yes (Other)
  Sender: FDA-Public Use
  Company Number: ADR-2012UNK004

PATIENT

DRUGS (1)
  1. NEVIRAPINE [Suspect]
     Indication: AIDS
     Dosage: one month
     Route: 048

REACTIONS (1)
  - Toxicity to various agents [None]
